FAERS Safety Report 9237867 (Version 2)
Quarter: 2013Q2

REPORT INFORMATION
  Report Type: Spontaneous
  Country: FR (occurrence: None)
  Receive Date: 20130415
  Receipt Date: 20130429
  Transmission Date: 20140414
  Serious: Yes (Other)
  Sender: FDA-Public Use
  Company Number: FR-ZYDUS-001080

PATIENT
  Age: 15 Year
  Sex: Female

DRUGS (1)
  1. LEVOFLOXACIN (LEVOFLOXACIN) [Suspect]

REACTIONS (3)
  - Polyarthritis [None]
  - Arthralgia [None]
  - Drug intolerance [None]
